FAERS Safety Report 10834961 (Version 1)
Quarter: 2015Q1

REPORT INFORMATION
  Report Type: Report from Study
  Country: US (occurrence: US)
  Receive Date: 20150219
  Receipt Date: 20150219
  Transmission Date: 20150721
  Serious: No
  Sender: FDA-Public Use
  Company Number: US-ABBVIE-14P-163-1207710-00

PATIENT
  Age: 27 Year
  Sex: Female

DRUGS (7)
  1. HUMIRA [Suspect]
     Active Substance: ADALIMUMAB
  2. HUMIRA [Suspect]
     Active Substance: ADALIMUMAB
     Indication: COLITIS ULCERATIVE
     Dosage: 4-40MG
     Route: 050
     Dates: start: 20140221, end: 20140221
  3. FISH OIL [Concomitant]
     Active Substance: FISH OIL
     Indication: PRODUCT USED FOR UNKNOWN INDICATION
  4. AMITRYPTYLINE [Concomitant]
     Indication: INSOMNIA
  5. PIRMELLA [Concomitant]
     Indication: PRODUCT USED FOR UNKNOWN INDICATION
  6. DICYCLOMINE [Concomitant]
     Active Substance: DICYCLOMINE HYDROCHLORIDE
     Indication: PAIN
  7. EQUATE CLARITIN [Concomitant]
     Indication: HYPERSENSITIVITY

REACTIONS (1)
  - Therapeutic response unexpected [Recovering/Resolving]

NARRATIVE: CASE EVENT DATE: 20140222
